FAERS Safety Report 6844786-5 (Version None)
Quarter: 2010Q3

REPORT INFORMATION
  Report Type: 
  Country: None (occurrence: None)
  Receive Date: 20100713
  Receipt Date: 20100628
  Transmission Date: 20110219
  Serious: Yes (Other)
  Sender: FDA-Public Use
  Company Number: AVE_01882_2010

PATIENT
  Sex: Female

DRUGS (3)
  1. CLONIDINE [Suspect]
     Indication: HYPERTENSION
     Dosage: 0.3 MG QD VIA 1/WEEKLY PATCH TRANSDERMAL; 0.3 MG QD, VIA 1/WEEKLY PATCH TRANSDERMAL
     Route: 062
     Dates: start: 20100101
  2. CLONIDINE [Suspect]
     Indication: HYPERTENSION
     Dosage: 0.3 MG QD VIA 1/WEEKLY PATCH TRANSDERMAL; 0.3 MG QD, VIA 1/WEEKLY PATCH TRANSDERMAL
     Route: 062
     Dates: start: 20100301
  3. CLONIDINE [Suspect]

REACTIONS (5)
  - BLOOD PRESSURE INADEQUATELY CONTROLLED [None]
  - DRUG INEFFECTIVE [None]
  - HYPERTENSIVE CRISIS [None]
  - PRODUCT QUALITY ISSUE [None]
  - WRIST SURGERY [None]
